FAERS Safety Report 4738754-7 (Version None)
Quarter: 2005Q3

REPORT INFORMATION
  Report Type: 
  Country: None (occurrence: None)
  Receive Date: 20050729
  Receipt Date: 20050104
  Transmission Date: 20060218
  Serious: Yes (Other)
  Sender: FDA-Public Use
  Company Number: US-2005-000044

PATIENT
  Age: 67 Year
  Sex: Male
  Weight: 86.2 kg

DRUGS (1)
  1. MAGNEVIST [Suspect]
     Indication: NUCLEAR MAGNETIC RESONANCE IMAGING
     Dosage: 19 ML, 1 DOSE, INTRAVENOUS
     Route: 042
     Dates: start: 20041215, end: 20041215

REACTIONS (3)
  - ANAPHYLACTOID REACTION [None]
  - RESPIRATORY DISTRESS [None]
  - VOMITING [None]
